FAERS Safety Report 18723958 (Version 1)
Quarter: 2021Q1

REPORT INFORMATION
  Report Type: Spontaneous
  Country: US (occurrence: US)
  Receive Date: 20210107
  Receipt Date: 20210107
  Transmission Date: 20210419
  Serious: No
  Sender: FDA-Public Use
  Company Number: None

PATIENT
  Age: 65 Year
  Sex: Male

DRUGS (1)
  1. CEPHALEXIN (CEPHALEXIN 500MG CAP) [Suspect]
     Active Substance: CEPHALEXIN
     Indication: TOOTH INFECTION
     Route: 048
     Dates: start: 20191102, end: 20191102

REACTIONS (6)
  - Anaphylactic reaction [None]
  - Prescription drug used without a prescription [None]
  - Speech disorder [None]
  - Drooling [None]
  - Swollen tongue [None]
  - Dyspnoea [None]

NARRATIVE: CASE EVENT DATE: 20191103
